FAERS Safety Report 9258210 (Version 1)
Quarter: 2013Q2

REPORT INFORMATION
  Report Type: Report from Study
  Country: DK (occurrence: DE)
  Receive Date: 20130426
  Receipt Date: 20130426
  Transmission Date: 20140414
  Serious: Yes (Hospitalization)
  Sender: FDA-Public Use
  Company Number: DE-FRI-1000044597

PATIENT
  Sex: Male

DRUGS (6)
  1. CITALOPRAM [Suspect]
     Indication: MAJOR DEPRESSION
     Dosage: 40 MG
     Route: 048
     Dates: start: 201208, end: 20130228
  2. CITALOPRAM [Suspect]
     Dosage: 30 MG
     Route: 048
     Dates: start: 20130301, end: 20130304
  3. CITALOPRAM [Suspect]
     Dosage: 20 MG
     Route: 048
     Dates: start: 20130305, end: 20130311
  4. CITALOPRAM [Suspect]
     Dosage: 10 MG
     Route: 048
     Dates: start: 20130312, end: 20130313
  5. LYRICA [Concomitant]
     Dosage: 150 MG
     Route: 048
     Dates: start: 201208
  6. MIRTAZAPIN [Concomitant]
     Dosage: 30 MG
     Route: 048
     Dates: start: 201208

REACTIONS (3)
  - Ejaculation disorder [Recovering/Resolving]
  - Male orgasmic disorder [Recovering/Resolving]
  - Drug ineffective [Unknown]
